FAERS Safety Report 16807458 (Version 4)
Quarter: 2019Q4

REPORT INFORMATION
  Report Type: Report from Study
  Country: US (occurrence: US)
  Receive Date: 20190913
  Receipt Date: 20191107
  Transmission Date: 20200122
  Serious: Yes (Hospitalization)
  Sender: FDA-Public Use
  Company Number: US-JNJFOC-20190910549

PATIENT
  Age: 61 Year
  Sex: Male
  Weight: 107 kg

DRUGS (11)
  1. IMBRUVICA [Suspect]
     Active Substance: IBRUTINIB
     Indication: CHRONIC LYMPHOCYTIC LEUKAEMIA REFRACTORY
     Dosage: 280 MG, QD
     Route: 048
     Dates: start: 20190119
  2. FLUOXETINE [Concomitant]
     Active Substance: FLUOXETINE HYDROCHLORIDE
  3. LISINOPRIL. [Concomitant]
     Active Substance: LISINOPRIL
  4. IBUPROFEN. [Concomitant]
     Active Substance: IBUPROFEN
  5. IMBRUVICA [Suspect]
     Active Substance: IBRUTINIB
     Route: 048
     Dates: start: 20190608
  6. METFORMIN [Concomitant]
     Active Substance: METFORMIN HYDROCHLORIDE
  7. IMBRUVICA [Suspect]
     Active Substance: IBRUTINIB
     Dosage: 280 MG, QD
     Route: 048
     Dates: start: 20190530
  8. NOVOLOG [Concomitant]
     Active Substance: INSULIN ASPART
  9. LANTUS [Concomitant]
     Active Substance: INSULIN GLARGINE
  10. TAMSULOSIN [Concomitant]
     Active Substance: TAMSULOSIN
  11. ZOFRAN [Concomitant]
     Active Substance: ONDANSETRON HYDROCHLORIDE

REACTIONS (13)
  - Abdominal pain [Unknown]
  - Peripheral swelling [Unknown]
  - Contusion [Not Recovered/Not Resolved]
  - Feeling abnormal [Unknown]
  - Constipation [Unknown]
  - Rash pustular [Not Recovered/Not Resolved]
  - Asthenia [Unknown]
  - Ecchymosis [Unknown]
  - Joint swelling [Unknown]
  - Nausea [Unknown]
  - Muscle spasms [Unknown]
  - Skin ulcer [Not Recovered/Not Resolved]
  - Discharge [Not Recovered/Not Resolved]

NARRATIVE: CASE EVENT DATE: 20190603
